FAERS Safety Report 10036216 (Version 3)
Quarter: 2014Q2

REPORT INFORMATION
  Report Type: Report from Study
  Country: US (occurrence: US)
  Receive Date: 20140325
  Receipt Date: 20140408
  Transmission Date: 20141212
  Serious: Yes (Other)
  Sender: FDA-Public Use
  Company Number: PHEH2013US025392

PATIENT
  Age: 59 Year
  Sex: Male
  Weight: 150 kg

DRUGS (6)
  1. MYFORTIC [Suspect]
     Indication: IMMUNOSUPPRESSION
     Dosage: 360 MG, BID
     Route: 048
     Dates: start: 20131127
  2. MYFORTIC [Suspect]
     Dosage: 720 MG, BID
     Route: 048
     Dates: end: 20140220
  3. PROGRAF [Concomitant]
     Indication: IMMUNOSUPPRESSION
     Dosage: UNK UKN, BID
     Route: 048
     Dates: start: 20041004
  4. PREDNISONE [Concomitant]
     Indication: IMMUNOSUPPRESSION
     Dosage: UNK UKN, DAILY
     Dates: start: 20040916
  5. RESITONE [Concomitant]
     Dosage: UNK UKN, HS
     Route: 048
  6. KLONOPIN [Concomitant]
     Indication: HYPERTENSION
     Dosage: UNK UKN, PRN
     Route: 048

REACTIONS (4)
  - Obsessive-compulsive disorder [Unknown]
  - Cognitive disorder [Recovered/Resolved]
  - Anger [Unknown]
  - Feeling abnormal [Unknown]
